FAERS Safety Report 14507472 (Version 1)
Quarter: 2018Q1

REPORT INFORMATION
  Report Type: Spontaneous
  Country: US (occurrence: US)
  Receive Date: 20180208
  Receipt Date: 20180208
  Transmission Date: 20180509
  Serious: No
  Sender: FDA-Public Use
  Company Number: US-PURDUE-USA-2017-0141245

PATIENT
  Age: 47 Year
  Sex: Male

DRUGS (7)
  1. OXYCODONE [Concomitant]
     Active Substance: OXYCODONE
     Indication: NEURALGIA
  2. OXYCODONE [Concomitant]
     Active Substance: OXYCODONE
     Indication: RENAL PAIN
     Dosage: 10 MG, 1-2 TABLETS, Q6H PRN
     Route: 048
  3. TYLENOL [Concomitant]
     Active Substance: ACETAMINOPHEN
     Indication: NEURALGIA
  4. BUPRENORPHINE (SIMILAR TO NDA 21-306) [Suspect]
     Active Substance: BUPRENORPHINE
     Indication: RENAL PAIN
     Dosage: UNK MCG/HR, WEEKLY
     Route: 062
     Dates: start: 201706, end: 2017
  5. NALOXONE [Concomitant]
     Active Substance: NALOXONE
     Indication: PRODUCT USED FOR UNKNOWN INDICATION
     Route: 048
  6. BUPRENORPHINE (SIMILAR TO NDA 21-306) [Suspect]
     Active Substance: BUPRENORPHINE
     Indication: NEURALGIA
  7. TYLENOL [Concomitant]
     Active Substance: ACETAMINOPHEN
     Indication: RENAL PAIN
     Dosage: 1-2 TABLET, Q6H PRN
     Route: 048

REACTIONS (3)
  - Nausea [Recovered/Resolved]
  - Arthritis [Recovered/Resolved]
  - Drug ineffective [Not Recovered/Not Resolved]

NARRATIVE: CASE EVENT DATE: 201706
